FAERS Safety Report 17254507 (Version 2)
Quarter: 2020Q1

REPORT INFORMATION
  Report Type: Spontaneous
  Country: US (occurrence: US)
  Receive Date: 20200109
  Receipt Date: 20200110
  Transmission Date: 20200409
  Serious: Yes (Other)
  Sender: FDA-Public Use
  Company Number: US-PFIZER INC-2020004650

PATIENT
  Age: 63 Year
  Sex: Female

DRUGS (5)
  1. PEPCID [Concomitant]
     Active Substance: FAMOTIDINE
     Dosage: 81 MG, UNK
  2. ASPIRINE [Concomitant]
     Active Substance: ASPIRIN
     Dosage: 81 MG, UNK
  3. CYTOXAN [Suspect]
     Active Substance: CYCLOPHOSPHAMIDE
     Indication: BREAST CANCER STAGE II
     Dosage: 600 MG/M2, CYCLIC (DOSE-DENSE CHEMOTHERAPY (EVERY 2 WEEKS), TOTAL OF 3 CYCLES)
  4. ADRIAMYCIN [Suspect]
     Active Substance: DOXORUBICIN HYDROCHLORIDE
     Indication: BREAST CANCER STAGE II
     Dosage: 60 MG/M2, CYCLIC (DOSE-DENSE CHEMOTHERAPY (EVERY 2 WEEKS), TOTAL OF 3 CYCLES)
  5. PEGFILGRASTIM [Concomitant]
     Active Substance: PEGFILGRASTIM
     Indication: BREAST CANCER STAGE II
     Dosage: 6 MG, CYCLIC (INJECTION OF PEGFILGRASTIM (6 MG) AFTER THE FIRST CYCLE ONLY)

REACTIONS (1)
  - Peripheral artery thrombosis [Unknown]
